FAERS Safety Report 22889279 (Version 7)
Quarter: 2024Q2

REPORT INFORMATION
  Report Type: Report from Study
  Country: CA (occurrence: CA)
  Receive Date: 20230831
  Receipt Date: 20240416
  Transmission Date: 20240716
  Serious: Yes (Hospitalization, Other)
  Sender: FDA-Public Use
  Company Number: CA-JNJFOC-20230763849

PATIENT
  Age: 58 Year
  Sex: Male

DRUGS (2)
  1. REMICADE [Suspect]
     Active Substance: INFLIXIMAB
     Indication: Colitis ulcerative
     Dosage: CANCELLED 30-AUG-2023^S APPOINTMENT.
     Route: 042
     Dates: start: 20110705
  2. REMICADE [Suspect]
     Active Substance: INFLIXIMAB
     Route: 042

REACTIONS (14)
  - Campylobacter infection [Recovered/Resolved]
  - Clostridium difficile infection [Unknown]
  - Cytomegalovirus infection [Unknown]
  - Abscess limb [Unknown]
  - Localised infection [Unknown]
  - Blood pressure increased [Unknown]
  - Pyrexia [Unknown]
  - Hospitalisation [Unknown]
  - Asthenia [Unknown]
  - Confusional state [Unknown]
  - Joint effusion [Unknown]
  - Pain in extremity [Unknown]
  - Erythema [Unknown]
  - Rash [Unknown]

NARRATIVE: CASE EVENT DATE: 20230725
